FAERS Safety Report 4898803-2 (Version None)
Quarter: 2006Q1

REPORT INFORMATION
  Report Type: 
  Country: None (occurrence: None)
  Receive Date: 20060127
  Receipt Date: 20060120
  Transmission Date: 20060701
  Serious: Yes (Hospitalization, Other)
  Sender: FDA-Public Use
  Company Number: 2005BI021110

PATIENT
  Age: 52 Year
  Sex: Female

DRUGS (4)
  1. AVONEX [Suspect]
     Indication: MULTIPLE SCLEROSIS
     Dosage: 30 UG; QW; IM
     Route: 030
     Dates: start: 20031121
  2. TRAMADOL [Concomitant]
  3. NEURONTIN [Concomitant]
  4. TRILEPTAL [Concomitant]

REACTIONS (6)
  - CONVULSION [None]
  - EPILEPSY [None]
  - FALL [None]
  - FATIGUE [None]
  - HEAD INJURY [None]
  - LOSS OF CONSCIOUSNESS [None]
